FAERS Safety Report 8036808-3 (Version None)
Quarter: 2012Q1

REPORT INFORMATION
  Report Type: 
  Country: None (occurrence: None)
  Receive Date: 20120111
  Receipt Date: 20110520
  Transmission Date: 20120608
  Serious: Yes (Death)
  Sender: FDA-Public Use
  Company Number: US-ROCHE-1029031

PATIENT

DRUGS (3)
  1. AVASTIN [Suspect]
     Indication: BILE DUCT CANCER
     Dosage: DAY 1, 15, 35
     Route: 042
  2. XELODA [Suspect]
     Indication: BILE DUCT CANCER
     Dosage: D1-14, D22-35
     Route: 048
  3. OXALIPLATIN [Suspect]
     Indication: BILE DUCT CANCER
     Dosage: DAY 1, 8, 22, 35
     Route: 042

REACTIONS (1)
  - HEPATIC FAILURE [None]
